FAERS Safety Report 14803163 (Version 1)
Quarter: 2018Q2

REPORT INFORMATION
  Report Type: Spontaneous
  Country: US (occurrence: US)
  Receive Date: 20180425
  Receipt Date: 20180425
  Transmission Date: 20180711
  Serious: No
  Sender: FDA-Public Use
  Company Number: US-GLENMARK PHARMACEUTICALS-2018GMK032527

PATIENT

DRUGS (2)
  1. IMIQUIMOD. [Suspect]
     Active Substance: IMIQUIMOD
     Indication: PAPILLOMA VIRAL INFECTION
     Dosage: UNK, QW/ONCE BEFORE BED TIME
     Route: 061
     Dates: start: 20180130
  2. IMIQUIMOD. [Suspect]
     Active Substance: IMIQUIMOD
     Indication: VAGINAL DYSPLASIA
     Dosage: UNK, QW (ONCE A WEEK)
     Route: 061
     Dates: start: 20180203

REACTIONS (8)
  - Pyrexia [Recovering/Resolving]
  - Product use in unapproved indication [Unknown]
  - Malaise [Recovering/Resolving]
  - Headache [Recovering/Resolving]
  - Fatigue [Recovering/Resolving]
  - Migraine [Recovering/Resolving]
  - Pain [Recovering/Resolving]
  - Product administered at inappropriate site [Unknown]

NARRATIVE: CASE EVENT DATE: 20180130
